FAERS Safety Report 8763009 (Version 2)
Quarter: 2012Q4

REPORT INFORMATION
  Report Type: Spontaneous
  Country: ES (occurrence: None)
  Receive Date: 20120827
  Receipt Date: 20120830
  Transmission Date: 20130627
  Serious: Yes (Other)
  Sender: FDA-Public Use
  Company Number: 2012AP002541

PATIENT
  Age: 62 Year
  Sex: Female

DRUGS (7)
  1. ANASTROZOLE [Suspect]
     Indication: BREAST CANCER
  2. DOXORUBICIN [Suspect]
     Indication: BREAST CANCER
  3. CYCLOPHOSPHAMIDE [Suspect]
     Indication: BREAST CANCER
  4. CORTICOSTEROIDS (CORTICOSTEROIDS) [Concomitant]
  5. DEXAMET:RASONE (DEXAMETHASONE) [Concomitant]
  6. OMEPRAZOLE (OMEPRAZOLE) [Concomitant]
  7. CHLORHEXIDINE (CHLORHEXIDINE) [Concomitant]

REACTIONS (3)
  - Osteonecrosis [None]
  - Sinusitis [None]
  - Oroantral fistula [None]
